FAERS Safety Report 4350268-5 (Version None)
Quarter: 2004Q2

REPORT INFORMATION
  Report Type: 
  Country: None (occurrence: None)
  Receive Date: 20040426
  Receipt Date: 20040409
  Transmission Date: 20050107
  Serious: Yes (Other)
  Sender: FDA-Public Use
  Company Number: DSA_24222_2004

PATIENT
  Sex: Male

DRUGS (3)
  1. ATIVAN [Suspect]
     Dosage: 1 MG QD PO
     Route: 048
  2. LITHIUM CARBONATE [Concomitant]
  3. PERICIAZINE [Concomitant]

REACTIONS (1)
  - SLEEP APNOEA SYNDROME [None]
